FAERS Safety Report 5709121-4 (Version None)
Quarter: 2008Q2

REPORT INFORMATION
  Report Type: 
  Country: None (occurrence: None)
  Receive Date: 20080416
  Receipt Date: 20080416
  Transmission Date: 20081010
  Serious: No
  Sender: FDA-Public Use
  Company Number: None

PATIENT
  Age: 58 Year
  Sex: Male
  Weight: 80.7403 kg

DRUGS (1)
  1. ALDARA [Suspect]
     Indication: SQUAMOUS CELL CARCINOMA
     Dosage: .22 G 3X/WEEK TOP
     Route: 061
     Dates: start: 20070322, end: 20070423

REACTIONS (6)
  - ACTIVITIES OF DAILY LIVING IMPAIRED [None]
  - APPLICATION SITE REACTION [None]
  - ARTHROPATHY [None]
  - DRUG INTERACTION [None]
  - POLYMYOSITIS [None]
  - WEIGHT DECREASED [None]
